FAERS Safety Report 6739152-7 (Version None)
Quarter: 2010Q2

REPORT INFORMATION
  Report Type: 
  Country: None (occurrence: None)
  Receive Date: 20100525
  Receipt Date: 20100514
  Transmission Date: 20101027
  Serious: No
  Sender: FDA-Public Use
  Company Number: US-JNJFOC-20100506125

PATIENT
  Sex: Male
  Weight: 108.86 kg

DRUGS (2)
  1. DURAGESIC-100 [Suspect]
     Indication: ARTHRALGIA
     Route: 062
  2. FENTANYL CITRATE [Suspect]
     Indication: ARTHRALGIA
     Dosage: NDC:0781-7242-55
     Route: 062

REACTIONS (1)
  - WRONG TECHNIQUE IN DRUG USAGE PROCESS [None]
